FAERS Safety Report 23150898 (Version 1)
Quarter: 2023Q4

REPORT INFORMATION
  Report Type: Spontaneous
  Country: KW (occurrence: KW)
  Receive Date: 20231106
  Receipt Date: 20231106
  Transmission Date: 20240110
  Serious: Yes (Death, Life-Threatening, Hospitalization)
  Sender: FDA-Public Use
  Company Number: KW-002147023-NVSC2023KW233457

PATIENT

DRUGS (4)
  1. RUXOLITINIB [Suspect]
     Active Substance: RUXOLITINIB
     Indication: Graft versus host disease
     Dosage: 10 MG, BID (STARTED WITH 5 MG BD FOR 15 DAYS)
     Route: 065
     Dates: start: 20220720
  2. TACROLIMUS [Concomitant]
     Active Substance: TACROLIMUS
     Indication: Product used for unknown indication
     Dosage: 1.5 MG, BID
     Route: 065
  3. PREDNISONE [Concomitant]
     Active Substance: PREDNISONE
     Indication: Product used for unknown indication
     Dosage: 10 MG
     Route: 065
  4. METHYLPREDNISOLONE [Concomitant]
     Active Substance: METHYLPREDNISOLONE
     Indication: Product used for unknown indication
     Dosage: 2 MG/KG
     Route: 065
     Dates: start: 202303

REACTIONS (3)
  - Lower respiratory tract infection [Fatal]
  - Multiple organ dysfunction syndrome [Fatal]
  - Graft versus host disease in lung [Fatal]

NARRATIVE: CASE EVENT DATE: 20221001
